FAERS Safety Report 5833677-4 (Version None)
Quarter: 2008Q3

REPORT INFORMATION
  Report Type: 
  Country: None (occurrence: None)
  Receive Date: 20080805
  Receipt Date: 20080724
  Transmission Date: 20090109
  Serious: Yes (Hospitalization, Other)
  Sender: FDA-Public Use
  Company Number: ES-ASTRAZENECA-2008AC02003

PATIENT
  Age: 4 Year
  Sex: Male
  Weight: 20 kg

DRUGS (9)
  1. MEROPENEM [Suspect]
     Indication: INFECTION
  2. VALPROIC ACID [Interacting]
     Indication: EPILEPSY
     Route: 048
  3. MIDAZOLAM HCL [Concomitant]
  4. CLONAZEPAM [Concomitant]
  5. CEFOTAXIMA [Concomitant]
  6. DIAZEPAM [Concomitant]
     Route: 042
  7. AMOXICILLIN [Concomitant]
  8. CLOBAZAM [Concomitant]
  9. OXCARBAZEPINE [Concomitant]
     Route: 048

REACTIONS (3)
  - CONVULSION [None]
  - DRUG INTERACTION [None]
  - DRUG LEVEL DECREASED [None]
